FAERS Safety Report 9355268 (Version 2)
Quarter: 2013Q2

REPORT INFORMATION
  Report Type: Report from Study
  Country: PL (occurrence: PL)
  Receive Date: 20130619
  Receipt Date: 20130626
  Transmission Date: 20140414
  Serious: Yes (Death, Hospitalization)
  Sender: FDA-Public Use
  Company Number: PL-SANOFI-AVENTIS-2013SA021029

PATIENT
  Age: 78 Year
  Sex: Male
  Weight: 71 kg

DRUGS (7)
  1. CABAZITAXEL [Suspect]
     Indication: PROSTATE CANCER METASTATIC
     Route: 042
     Dates: start: 20130213, end: 20130213
  2. PREDNISONE [Suspect]
     Indication: PROSTATE CANCER METASTATIC
     Route: 048
     Dates: start: 20130213, end: 20130217
  3. ZALDIAR [Concomitant]
     Route: 048
     Dates: start: 20130202, end: 20130205
  4. DICLAC [Concomitant]
     Route: 048
     Dates: start: 20130202, end: 20130205
  5. CLEXANE [Concomitant]
     Route: 048
     Dates: start: 20130202, end: 20130204
  6. BONEFOS [Concomitant]
     Route: 048
     Dates: start: 20121004
  7. HYDROXYZINE [Concomitant]
     Route: 048
     Dates: start: 20130202, end: 20130204

REACTIONS (2)
  - Respiratory failure [Fatal]
  - Penile oedema [Not Recovered/Not Resolved]
